FAERS Safety Report 4769890-7 (Version None)
Quarter: 2005Q3

REPORT INFORMATION
  Report Type: 
  Country: None (occurrence: None)
  Receive Date: 20050908
  Receipt Date: 20050601
  Transmission Date: 20060218
  Serious: Yes (Hospitalization)
  Sender: FDA-Public Use
  Company Number: A03200501646

PATIENT
  Age: 62 Year
  Sex: Female

DRUGS (3)
  1. ELOXATIN [Suspect]
     Indication: COLON CANCER STAGE III
     Dosage: 150 MG Q2W - INTRAVENOUS NOS
     Route: 042
     Dates: start: 20050104, end: 20050104
  2. FLUOROURACIL [Concomitant]
  3. LEUCOVORIN [Concomitant]

REACTIONS (3)
  - ANAPHYLACTIC REACTION [None]
  - CHEST PAIN [None]
  - DYSPNOEA [None]
